FAERS Safety Report 10744384 (Version 7)
Quarter: 2018Q4

REPORT INFORMATION
  Report Type: Spontaneous
  Country: US (occurrence: US)
  Receive Date: 20150128
  Receipt Date: 20181129
  Transmission Date: 20190204
  Serious: Yes (Hospitalization, Other)
  Sender: FDA-Public Use
  Company Number: US-PFIZER INC-2015037276

PATIENT
  Age: 52 Year
  Sex: Male

DRUGS (6)
  1. LYRICA [Suspect]
     Active Substance: PREGABALIN
     Indication: PARAESTHESIA
     Dosage: 200 MG 3 TIMES A DAY AND 50 MG ONCE AT NIGHT
     Route: 048
     Dates: start: 2010
  2. SOMA [Concomitant]
     Active Substance: CARISOPRODOL
     Dosage: UNK UNK, 3X/DAY
  3. LYRICA [Suspect]
     Active Substance: PREGABALIN
     Indication: NEUROPATHY PERIPHERAL
     Dosage: 50 MG, 1X/DAY (QHS)
     Route: 048
  4. LYRICA [Suspect]
     Active Substance: PREGABALIN
     Indication: BURNING SENSATION
     Dosage: 100 MG, UNK
     Route: 048
  5. LYRICA [Suspect]
     Active Substance: PREGABALIN
     Indication: PAIN
     Dosage: 300 MG, TID
     Route: 048
  6. LORTAB [Concomitant]
     Active Substance: ACETAMINOPHEN\HYDROCODONE BITARTRATE
     Dosage: [HYDROCODONE BITARTRATE 10MG/ PARACETAMOL 325MG], 3X/DAY

REACTIONS (5)
  - Hernia [Recovered/Resolved]
  - Burning sensation [Not Recovered/Not Resolved]
  - Overdose [Unknown]
  - Middle insomnia [Unknown]
  - Malaise [Unknown]

NARRATIVE: CASE EVENT DATE: 2010
